FAERS Safety Report 5997109-8 (Version None)
Quarter: 2008Q4

REPORT INFORMATION
  Report Type: 
  Country: None (occurrence: None)
  Receive Date: 20081212
  Receipt Date: 20081028
  Transmission Date: 20090506
  Serious: No
  Sender: FDA-Public Use
  Company Number: US-ABBOTT-08P-163-0484726-00

PATIENT
  Sex: Female
  Weight: 69.916 kg

DRUGS (6)
  1. HUMIRA [Suspect]
     Indication: UVEITIS
     Route: 058
     Dates: start: 20070101, end: 20081001
  2. HUMIRA [Suspect]
     Indication: JUVENILE ARTHRITIS
     Route: 058
     Dates: start: 20081001
  3. FOLIC ACID [Concomitant]
     Indication: JUVENILE ARTHRITIS
     Route: 048
  4. NAPROXEN SODIUM [Concomitant]
     Indication: JUVENILE ARTHRITIS
     Route: 048
  5. ACETAMINOPHEN [Concomitant]
     Indication: DRUG USE FOR UNKNOWN INDICATION
     Route: 048
  6. METHOTREXATE [Concomitant]
     Indication: JUVENILE ARTHRITIS
     Dates: start: 20081001

REACTIONS (2)
  - JUVENILE ARTHRITIS [None]
  - UVEITIS [None]
